FAERS Safety Report 22059337 (Version 1)
Quarter: 2023Q1

REPORT INFORMATION
  Report Type: Spontaneous
  Country: US (occurrence: None)
  Receive Date: 20230302
  Receipt Date: 20230302
  Transmission Date: 20230418
  Serious: No
  Sender: FDA-Public Use
  Company Number: None

PATIENT
  Age: 24 Year
  Sex: Male
  Weight: 76.5 kg

DRUGS (7)
  1. BUPROPION HYDROCHLORIDE EXTENDED RELEASE [Suspect]
     Active Substance: BUPROPION HYDROCHLORIDE
     Indication: Depression
     Dosage: OTHER QUANTITY : 2 TABLET(S);?
     Route: 048
     Dates: start: 20230120, end: 20230301
  2. Ritalin, 20 mg 2x/day [Concomitant]
  3. bupropion XL, 300 mg/day [Concomitant]
  4. levothyroxine, 100 mcg/day [Concomitant]
  5. Omega-3 fish oil capsules [Concomitant]
  6. Men^s one-a-day multivitamins [Concomitant]
  7. Men^s one-a-day multivitamins [Concomitant]

REACTIONS (2)
  - Loss of libido [None]
  - Erectile dysfunction [None]

NARRATIVE: CASE EVENT DATE: 20230120
